FAERS Safety Report 13532449 (Version 2)
Quarter: 2017Q3

REPORT INFORMATION
  Report Type: Report from Study
  Country: CA (occurrence: CA)
  Receive Date: 20170510
  Receipt Date: 20170802
  Transmission Date: 20171127
  Serious: Yes (Other)
  Sender: FDA-Public Use
  Company Number: CA-AMGEN-CANSL2017067709

PATIENT
  Age: 84 Year
  Sex: Female

DRUGS (1)
  1. PROLIA [Suspect]
     Active Substance: DENOSUMAB
     Indication: OSTEOPOROSIS POSTMENOPAUSAL
     Dosage: UNK
     Route: 065
     Dates: start: 20141030

REACTIONS (5)
  - Cardiac disorder [Not Recovered/Not Resolved]
  - Exposed bone in jaw [Not Recovered/Not Resolved]
  - Tooth infection [Unknown]
  - Pain [Not Recovered/Not Resolved]
  - Impaired healing [Not Recovered/Not Resolved]
